FAERS Safety Report 8871999 (Version 2)
Quarter: 2013Q2

REPORT INFORMATION
  Report Type: Spontaneous
  Country: US (occurrence: US)
  Receive Date: 20121023
  Receipt Date: 20130412
  Transmission Date: 20140414
  Serious: No
  Sender: FDA-Public Use
  Company Number: US-ASTELLAS-2012US004498

PATIENT
  Age: 75 Year
  Sex: Male
  Weight: 63 kg

DRUGS (3)
  1. PROGRAF [Suspect]
     Indication: RENAL TRANSPLANT
     Dosage: 1 MG, UID/QD IN THE MORNING
     Route: 048
     Dates: start: 20060928
  2. PROGRAF [Suspect]
     Dosage: 0.5 MG, QHS
     Route: 048
     Dates: start: 20060928
  3. BLOOD PRESSURE MEDICATION [Concomitant]
     Indication: BLOOD PRESSURE
     Dosage: UNK
     Route: 065

REACTIONS (2)
  - Dizziness postural [Unknown]
  - Iron deficiency [Not Recovered/Not Resolved]
